FAERS Safety Report 7305164-8 (Version None)
Quarter: 2011Q1

REPORT INFORMATION
  Report Type: 
  Country: None (occurrence: None)
  Receive Date: 20110222
  Receipt Date: 20110210
  Transmission Date: 20110831
  Serious: Yes (Disabling)
  Sender: FDA-Public Use
  Company Number: DE-SANOFI-AVENTIS-2011SA004882

PATIENT
  Age: 68 Year
  Sex: Female
  Weight: 105 kg

DRUGS (11)
  1. HEPARIN [Concomitant]
     Route: 058
     Dates: start: 20110114, end: 20110203
  2. ATORVASTATIN [Concomitant]
     Route: 048
     Dates: start: 20110112
  3. PANTOZOL [Concomitant]
     Indication: ANGINA PECTORIS
     Route: 048
     Dates: start: 20110112
  4. VALSARTAN [Concomitant]
     Route: 065
     Dates: start: 20110113, end: 20110121
  5. NEBIVOLOL HCL [Concomitant]
     Route: 065
     Dates: start: 20110114, end: 20110118
  6. ZINC [Concomitant]
     Route: 048
  7. PANTOZOL [Concomitant]
     Indication: STRESS
     Route: 048
     Dates: start: 20110112
  8. SELENIUM/VITAMINS NOS [Concomitant]
     Route: 048
  9. MULTAQ [Suspect]
     Route: 048
     Dates: start: 20110114, end: 20110123
  10. ACETYLSALICYLIC ACID [Concomitant]
     Route: 048
     Dates: start: 20110116
  11. ACETYLSALICYLIC ACID [Concomitant]
     Route: 048
     Dates: start: 20110116

REACTIONS (6)
  - HALLUCINATION, VISUAL [None]
  - GAIT DISTURBANCE [None]
  - OFF LABEL USE [None]
  - DYSPNOEA [None]
  - FEAR [None]
  - DIZZINESS [None]
